FAERS Safety Report 18782159 (Version 1)
Quarter: 2021Q1

REPORT INFORMATION
  Report Type: Spontaneous
  Country: US (occurrence: US)
  Receive Date: 20210125
  Receipt Date: 20210125
  Transmission Date: 20210419
  Serious: No
  Sender: FDA-Public Use
  Company Number: US-ALLERGAN-2023379US

PATIENT
  Age: 11 Year
  Sex: Male

DRUGS (4)
  1. PATADAY [Concomitant]
     Active Substance: OLOPATADINE HYDROCHLORIDE
  2. RESTASIS [Suspect]
     Active Substance: CYCLOSPORINE
     Indication: DRY EYE
     Dosage: 3?4 VIALS PER DAY
     Dates: start: 2015
  3. CROMOLYN [Concomitant]
     Active Substance: CROMOLYN
  4. BLINK [Concomitant]

REACTIONS (1)
  - Off label use [Unknown]
